FAERS Safety Report 4467027-5 (Version None)
Quarter: 2004Q4

REPORT INFORMATION
  Report Type: 
  Country: None (occurrence: None)
  Receive Date: 20041001
  Receipt Date: 20041001
  Transmission Date: 20050328
  Serious: Yes (Other)
  Sender: FDA-Public Use
  Company Number: None

PATIENT
  Age: 69 Year
  Sex: Female
  Weight: 44.4525 kg

DRUGS (1)
  1. VIOXX [Suspect]
     Indication: RHEUMATOID ARTHRITIS
     Dosage: 25 MG   ONCE A DAY   ORAL
     Route: 048
     Dates: start: 20040108, end: 20040929

REACTIONS (3)
  - BLOOD PRESSURE INCREASED [None]
  - EXTRASYSTOLES [None]
  - PALPITATIONS [None]
